FAERS Safety Report 18424853 (Version 1)
Quarter: 2020Q4

REPORT INFORMATION
  Report Type: Spontaneous
  Country: ES (occurrence: ES)
  Receive Date: 20201026
  Receipt Date: 20201026
  Transmission Date: 20210114
  Serious: No
  Sender: FDA-Public Use
  Company Number: ES-LUPIN PHARMACEUTICALS INC.-2020-07149

PATIENT
  Age: 70 Year
  Sex: Female

DRUGS (1)
  1. HYDROXYCHLOROQUINE [Suspect]
     Active Substance: HYDROXYCHLOROQUINE
     Indication: CHRONIC CUTANEOUS LUPUS ERYTHEMATOSUS
     Dosage: 400 MILLIGRAM, QD
     Route: 065

REACTIONS (1)
  - Hair colour changes [Recovering/Resolving]
